FAERS Safety Report 5030279-7 (Version None)
Quarter: 2006Q2

REPORT INFORMATION
  Report Type: 
  Country: None (occurrence: None)
  Receive Date: 20060614
  Receipt Date: 20060605
  Transmission Date: 20061013
  Serious: Yes (Other)
  Sender: FDA-Public Use
  Company Number: 430003M06GBR

PATIENT
  Age: 53 Year
  Sex: Male

DRUGS (3)
  1. NOVANTRONE [Suspect]
     Indication: LYMPHOMA
     Dosage: INTRAVENOUS
     Route: 040
  2. DEXAMETHASONE [Suspect]
     Indication: LYMPHOMA
     Dosage: ORAL
     Route: 048
  3. FLUDARABINE [Suspect]
     Dosage: 8 OTHER, ORAL
     Route: 048

REACTIONS (5)
  - BONE DISORDER [None]
  - OSTEONECROSIS [None]
  - POSITRON EMISSION TOMOGRAM ABNORMAL [None]
  - STEROID WITHDRAWAL SYNDROME [None]
  - X-RAY ABNORMAL [None]
